FAERS Safety Report 14558597 (Version 1)
Quarter: 2018Q1

REPORT INFORMATION
  Report Type: Spontaneous
  Country: PT (occurrence: PT)
  Receive Date: 20180221
  Receipt Date: 20180221
  Transmission Date: 20180509
  Serious: Yes (Other)
  Sender: FDA-Public Use
  Company Number: PT-IMPAX LABORATORIES, INC-2018-IPXL-00515

PATIENT
  Age: 38 Year
  Sex: Male

DRUGS (5)
  1. DEXAMETHASONE. [Concomitant]
     Active Substance: DEXAMETHASONE
     Indication: NEUROCYSTICERCOSIS
     Dosage: 10 MG, 3 /DAY (EVERY 8 HOURS)
     Route: 065
  2. PRAZIQUANTEL [Suspect]
     Active Substance: PRAZIQUANTEL
     Indication: NEUROCYSTICERCOSIS
     Dosage: UNK
     Route: 065
  3. DEXAMETHASONE. [Concomitant]
     Active Substance: DEXAMETHASONE
     Dosage: 10 MG, 4 /DAY, (EVERY 6 HOURS)
     Route: 065
  4. ALBENZA [Suspect]
     Active Substance: ALBENDAZOLE
     Indication: NEUROCYSTICERCOSIS
     Dosage: UNK
     Route: 065
  5. CARBAMAZEPINE. [Concomitant]
     Active Substance: CARBAMAZEPINE
     Indication: EPILEPSY
     Dosage: UNK
     Route: 065

REACTIONS (3)
  - Eye pain [Recovered/Resolved]
  - Eyelid oedema [Recovered/Resolved]
  - Condition aggravated [Recovered/Resolved]
